FAERS Safety Report 8862319 (Version 3)
Quarter: 2013Q1

REPORT INFORMATION
  Report Type: Spontaneous
  Country: FR (occurrence: FR)
  Receive Date: 20121026
  Receipt Date: 20130214
  Transmission Date: 20140127
  Serious: Yes (Life-Threatening)
  Sender: FDA-Public Use
  Company Number: FR-NOVOPROD-362343

PATIENT
  Age: 65 Year
  Sex: Female
  Weight: 89 kg

DRUGS (7)
  1. VICTOZA [Suspect]
     Indication: TYPE 2 DIABETES MELLITUS
     Dosage: 1.8 MG, QD
     Route: 065
     Dates: start: 20100402, end: 20121009
  2. LEVEMIR FLEXPEN [Concomitant]
     Indication: TYPE 2 DIABETES MELLITUS
     Dosage: 44 IU, QD
     Route: 058
     Dates: start: 20121007, end: 20121009
  3. LEVEMIR FLEXPEN [Concomitant]
     Dosage: 12 IU, QD
     Route: 058
  4. NOVORAPID [Concomitant]
     Indication: TYPE 2 DIABETES MELLITUS
     Dosage: 4 IU, TID
  5. GLUCOVANCE [Concomitant]
     Indication: TYPE 2 DIABETES MELLITUS
     Dosage: 1515 MG, QD
     Route: 048
     Dates: start: 20090616, end: 20110726
  6. DIAMICRON [Concomitant]
     Indication: TYPE 2 DIABETES MELLITUS
     Dosage: 120 MG, QD
     Dates: start: 20110726, end: 20121009
  7. METFORMINE [Concomitant]
     Dosage: 2 G, QD
     Route: 048
     Dates: start: 20110726, end: 20121009

REACTIONS (1)
  - Hepatocellular carcinoma [Not Recovered/Not Resolved]
